FAERS Safety Report 5338935-8 (Version None)
Quarter: 2007Q2

REPORT INFORMATION
  Report Type: 
  Country: None (occurrence: None)
  Receive Date: 20070404
  Receipt Date: 20060421
  Transmission Date: 20071010
  Serious: Yes (Other)
  Sender: FDA-Public Use
  Company Number: HQWYE945224APR06

PATIENT
  Sex: Female
  Weight: 68.1 kg

DRUGS (7)
  1. ALAVERT [Suspect]
     Indication: RHINORRHOEA
     Dosage: 1 TABLET 1X PER 1 DAY, ORAL
     Route: 048
     Dates: start: 20060419, end: 20060420
  2. ALAVERT [Suspect]
     Indication: SINUS HEADACHE
     Dosage: 1 TABLET 1X PER 1 DAY, ORAL
     Route: 048
     Dates: start: 20060419, end: 20060420
  3. ALAVERT [Suspect]
     Indication: SNEEZING
     Dosage: 1 TABLET 1X PER 1 DAY, ORAL
     Route: 048
     Dates: start: 20060419, end: 20060420
  4. UNSPECIFIED NUTRITIONAL SUPPLEMENT (UNSPECIFIED NUTRITIONAL SUPPLEMENT [Concomitant]
  5. ACTIVELLA [Concomitant]
  6. VITAMIN C (ASCORBIC AID) [Concomitant]
  7. VITAMIN B (VITAMIN B) [Concomitant]

REACTIONS (1)
  - INSOMNIA [None]
